FAERS Safety Report 16095067 (Version 1)
Quarter: 2019Q1

REPORT INFORMATION
  Report Type: Spontaneous
  Country: US (occurrence: US)
  Receive Date: 20190320
  Receipt Date: 20190320
  Transmission Date: 20190418
  Serious: Yes (Hospitalization)
  Sender: FDA-Public Use
  Company Number: US-BAYER-2019-049976

PATIENT
  Age: 31 Year
  Sex: Female

DRUGS (1)
  1. KYLEENA [Suspect]
     Active Substance: LEVONORGESTREL
     Indication: MENSTRUAL CYCLE MANAGEMENT
     Dosage: 17.5 MCG/24HR, CONT
     Route: 015
     Dates: start: 20181119, end: 20190308

REACTIONS (7)
  - Sensory loss [Recovering/Resolving]
  - Conversion disorder [None]
  - Arthralgia [None]
  - Device use issue [None]
  - Paraesthesia [None]
  - Off label use of device [None]
  - Muscular weakness [None]

NARRATIVE: CASE EVENT DATE: 20181230
